FAERS Safety Report 12923748 (Version 4)
Quarter: 2017Q1

REPORT INFORMATION
  Report Type: Spontaneous
  Country: US (occurrence: US)
  Receive Date: 20161109
  Receipt Date: 20170106
  Transmission Date: 20170428
  Serious: No
  Sender: FDA-Public Use
  Company Number: US-PFIZER INC-2016434389

PATIENT
  Age: 61 Year
  Sex: Female
  Weight: 99.79 kg

DRUGS (33)
  1. LYRICA [Suspect]
     Active Substance: PREGABALIN
     Indication: DIABETIC NEUROPATHY
     Dosage: 50 MG, AS NEEDED (50 MG PRN)
     Dates: start: 20140520
  2. LYRICA [Suspect]
     Active Substance: PREGABALIN
     Dosage: 50 MG, UNK
     Dates: start: 201611
  3. ACETAMINOPHEN. [Concomitant]
     Active Substance: ACETAMINOPHEN
     Indication: HEADACHE
     Dosage: 650 MG, EVERY 4 HRS 1- 2 TABS Q 4 HOURS)
     Route: 048
     Dates: start: 20080407
  4. LEVOTHYROXINE. [Concomitant]
     Active Substance: LEVOTHYROXINE
     Dosage: 100 UG, DAILY
     Route: 048
     Dates: start: 20161004
  5. LEVOTHYROXINE. [Concomitant]
     Active Substance: LEVOTHYROXINE
     Dosage: UNK
     Dates: start: 2012
  6. AMLODIPINE [Concomitant]
     Active Substance: AMLODIPINE BESYLATE
     Dosage: 20 MG, DAILY
     Route: 048
     Dates: start: 20161004
  7. AMLODIPINE [Concomitant]
     Active Substance: AMLODIPINE BESYLATE
     Dosage: UNK
     Dates: start: 2015, end: 2016
  8. RENVELA [Concomitant]
     Active Substance: SEVELAMER CARBONATE
     Dosage: 800 MG, 3X/DAY
     Route: 048
     Dates: start: 20161004
  9. LYRICA [Suspect]
     Active Substance: PREGABALIN
     Dosage: 75 MG, 1X/DAY
     Dates: start: 2007, end: 201608
  10. HYDROCODONE [Concomitant]
     Active Substance: HYDROCODONE
     Dosage: 1.5 MG, AS NEEDED (HYDROCODONE 5 MG; 1.5 MG TABLET PRN)
     Dates: start: 20141015
  11. SODIUM [Concomitant]
     Active Substance: SODIUM
     Dosage: 2000 MG, 1X/DAY
  12. PRAVASTATIN. [Concomitant]
     Active Substance: PRAVASTATIN
     Dosage: 20 MG, 1X/DAY (AT BEDTIME)
     Route: 048
     Dates: start: 20161004
  13. ZYRTEC [Concomitant]
     Active Substance: CETIRIZINE HYDROCHLORIDE
     Dosage: 10 MG, DAILY
     Route: 048
     Dates: start: 20161004
  14. ACETAMINOPHEN. [Concomitant]
     Active Substance: ACETAMINOPHEN
     Indication: PAIN IN EXTREMITY
     Dosage: 325 MG, EVERY 4 HRS  Q 4 HOURS)
     Route: 048
     Dates: start: 20080407
  15. LYRICA [Suspect]
     Active Substance: PREGABALIN
     Indication: FIBROMYALGIA
     Dosage: 75 MG, 1X/DAY
     Dates: start: 2006, end: 201609
  16. LYRICA [Suspect]
     Active Substance: PREGABALIN
     Dosage: 75 MG, 1X/DAY
     Route: 048
     Dates: start: 20161004
  17. AMBIEN [Concomitant]
     Active Substance: ZOLPIDEM TARTRATE
     Dosage: 5 MG, 1X/DAY
     Route: 048
     Dates: start: 20161004
  18. LYRICA [Suspect]
     Active Substance: PREGABALIN
     Indication: NEUROPATHY PERIPHERAL
     Dosage: 75 MG, 1X/DAY (75 DAILY AT NIGHT )
     Route: 048
     Dates: start: 20140520
  19. HYDROCODONE [Concomitant]
     Active Substance: HYDROCODONE
     Dosage: UNK
     Dates: start: 2007
  20. FLONASE [Concomitant]
     Active Substance: FLUTICASONE PROPIONATE
     Dosage: UNK
     Dates: start: 2004
  21. LYRICA [Suspect]
     Active Substance: PREGABALIN
     Dosage: 50 MG, 1X/DAY
     Dates: start: 20140520
  22. CORICIDIN HBP [Concomitant]
     Active Substance: ACETAMINOPHEN\CHLORPHENIRAMINE MALEATE
     Dosage: UNK, AS NEEDED
     Dates: start: 20141015
  23. SYSTANE (HYPROMELLOSE 2910 (4000 MPA.S)) [Concomitant]
     Active Substance: HYPROMELLOSE 2910 (4000 MPA.S)
     Dosage: 2 GTT, 3X/DAY
     Route: 047
     Dates: start: 20161004
  24. ACETAMINOPHEN. [Concomitant]
     Active Substance: ACETAMINOPHEN
     Indication: PYREXIA
     Dosage: 325 MG, EVERY 4 HRS 325 MG, UNK (1- 2 TABS Q 4 HOURS)
     Route: 048
     Dates: start: 20081001
  25. DIPHENHYDRAMINE. [Concomitant]
     Active Substance: DIPHENHYDRAMINE
     Indication: ANXIETY
     Dosage: UNK (12.50 MG IV PUSH 12.5- 25 MG )
     Route: 042
     Dates: start: 20080407
  26. PAROXETINE. [Concomitant]
     Active Substance: PAROXETINE
     Dosage: 10 MG, DAILY
     Dates: start: 20140705
  27. SYSTANE (HYPROMELLOSE 2910 (4000 MPA.S)) [Concomitant]
     Active Substance: HYPROMELLOSE 2910 (4000 MPA.S)
     Dosage: UNK
     Dates: start: 2010
  28. HECTOROL [Concomitant]
     Active Substance: DOXERCALCIFEROL
     Indication: HYPERPARATHYROIDISM SECONDARY
     Dosage: 2 UG, UNK (2.0 MCG IV PUSH 3 X QW SCHEDULE: TU TH SA)
     Route: 042
     Dates: start: 20160106
  29. VENOFER [Concomitant]
     Active Substance: IRON SUCROSE
     Indication: IRON DEFICIENCY ANAEMIA
     Dosage: 50 MG, UNK (50.0 MG IV PUSH QW SCHEDULE: TU)
     Route: 042
     Dates: start: 20160111
  30. CLONIDINE. [Concomitant]
     Active Substance: CLONIDINE
     Indication: ESSENTIAL HYPERTENSION
     Dosage: UNK (0.10 MG PO 0.1 MG- 0.2 MG)
     Route: 048
     Dates: start: 20080407
  31. DIPHENHYDRAMINE. [Concomitant]
     Active Substance: DIPHENHYDRAMINE
     Indication: PRURITUS
  32. LEVOTHYROXINE. [Concomitant]
     Active Substance: LEVOTHYROXINE
     Dosage: 50 UG, DAILY
     Dates: start: 20141015
  33. FLONASE [Concomitant]
     Active Substance: FLUTICASONE PROPIONATE
     Dosage: UNK, AS NEEDED
     Dates: start: 20140520

REACTIONS (4)
  - Drug effect incomplete [Not Recovered/Not Resolved]
  - Product use issue [Recovered/Resolved]
  - Prescribed underdose [Recovered/Resolved]
  - Pain [Not Recovered/Not Resolved]

NARRATIVE: CASE EVENT DATE: 20140520
